FAERS Safety Report 9762918 (Version 1)
Quarter: 2013Q4

REPORT INFORMATION
  Report Type: Report from Study
  Country: BR (occurrence: BR)
  Receive Date: 20131216
  Receipt Date: 20131216
  Transmission Date: 20140711
  Serious: Yes (Other)
  Sender: FDA-Public Use
  Company Number: PHHY2013BR145956

PATIENT
  Sex: Female

DRUGS (4)
  1. GILENYA [Suspect]
     Indication: MULTIPLE SCLEROSIS
     Dosage: 1 DF, QD
     Route: 048
     Dates: start: 201304, end: 20131130
  2. AMYTRIL [Concomitant]
  3. DAFORIN [Concomitant]
  4. ESCITALOPRAM [Concomitant]

REACTIONS (2)
  - Skin reaction [Recovering/Resolving]
  - Dermatitis [Recovering/Resolving]
